FAERS Safety Report 17887417 (Version 2)
Quarter: 2020Q2

REPORT INFORMATION
  Report Type: Spontaneous
  Country: US (occurrence: US)
  Receive Date: 20200611
  Receipt Date: 20200611
  Transmission Date: 20200714
  Serious: No
  Sender: FDA-Public Use
  Company Number: US-GALDERMA-US19070363

PATIENT
  Sex: Female

DRUGS (2)
  1. ORACEA [Suspect]
     Active Substance: DOXYCYCLINE
     Indication: ROSACEA
     Route: 048
     Dates: start: 2019
  2. PRESERVISION EYE VITAMINS [Concomitant]
     Indication: PRODUCT USED FOR UNKNOWN INDICATION
     Route: 065

REACTIONS (2)
  - Gingival pain [Not Recovered/Not Resolved]
  - Dysphonia [Not Recovered/Not Resolved]

NARRATIVE: CASE EVENT DATE: 2019
